FAERS Safety Report 13932237 (Version 1)
Quarter: 2017Q3

REPORT INFORMATION
  Report Type: Spontaneous
  Country: US (occurrence: US)
  Receive Date: 20170904
  Receipt Date: 20170904
  Transmission Date: 20171127
  Serious: No
  Sender: FDA-Public Use
  Company Number: US-PFIZER INC-2017381987

PATIENT
  Age: 69 Year
  Sex: Male
  Weight: 92 kg

DRUGS (2)
  1. NICOTROL [Suspect]
     Active Substance: NICOTINE
     Indication: SMOKING CESSATION THERAPY
     Dosage: PUFF  HARD FOR 2-3 PUFFS.
     Dates: end: 20170830
  2. BUPROPION. [Suspect]
     Active Substance: BUPROPION
     Indication: SMOKING CESSATION THERAPY
     Dosage: 150 MG, 1X/DAY
     Route: 048
     Dates: end: 201708

REACTIONS (3)
  - Abdominal discomfort [Recovered/Resolved]
  - Drug ineffective [Recovered/Resolved]
  - Vision blurred [Recovered/Resolved]
